FAERS Safety Report 12587076 (Version 3)
Quarter: 2017Q2

REPORT INFORMATION
  Report Type: Spontaneous
  Country: US (occurrence: US)
  Receive Date: 20160725
  Receipt Date: 20170413
  Transmission Date: 20170830
  Serious: No
  Sender: FDA-Public Use
  Company Number: US-PFIZER INC-2016327276

PATIENT
  Age: 71 Year
  Sex: Female

DRUGS (1)
  1. IBRANCE [Suspect]
     Active Substance: PALBOCICLIB
     Indication: BREAST CANCER FEMALE
     Dosage: 75 MG, CYCLIC (ONE DAILY FOR 21 DAYS, THEN 7 DAYS OFF )
     Route: 048
     Dates: start: 20151124

REACTIONS (2)
  - Alopecia [Unknown]
  - Tremor [Recovering/Resolving]
